FAERS Safety Report 12389386 (Version 1)
Quarter: 2016Q2

REPORT INFORMATION
  Report Type: Spontaneous
  Country: JP (occurrence: JP)
  Receive Date: 20160520
  Receipt Date: 20160520
  Transmission Date: 20160815
  Serious: Yes (Death, Hospitalization)
  Sender: FDA-Public Use
  Company Number: JP-JNJFOC-20160513516

PATIENT
  Age: 76 Year
  Sex: Male
  Weight: 55 kg

DRUGS (11)
  1. SIMPONI [Suspect]
     Active Substance: GOLIMUMAB
     Indication: RHEUMATOID ARTHRITIS
     Route: 058
     Dates: start: 201311, end: 20140320
  2. PREDNISOLONE ACETATE. [Concomitant]
     Active Substance: PREDNISOLONE ACETATE
     Indication: RHEUMATOID ARTHRITIS
     Route: 048
     Dates: start: 20131004
  3. WARFARIN POTASSIUM [Concomitant]
     Active Substance: WARFARIN POTASSIUM
     Route: 048
     Dates: start: 2008
  4. GLIMEPIRIDE. [Concomitant]
     Active Substance: GLIMEPIRIDE
     Route: 048
     Dates: start: 2008
  5. DILTIAZEM HYDROCHLORIDE. [Concomitant]
     Active Substance: DILTIAZEM HYDROCHLORIDE
     Route: 048
     Dates: start: 2008
  6. SITAGLIPTIN PHOSPHATE MONOHYDRATE [Concomitant]
     Route: 048
     Dates: start: 2008
  7. METILDIGOXIN [Concomitant]
     Active Substance: METILDIGOXIN
     Indication: RHEUMATOID ARTHRITIS
     Route: 048
     Dates: start: 2008
  8. PILSICAINIDE HYDROCHLORIDE [Concomitant]
     Active Substance: PILSICAINIDE HYDROCHLORIDE
     Route: 048
     Dates: start: 2008
  9. POTASSIUM ASPARTATE [Concomitant]
     Active Substance: POTASSIUM ASPARTATE
     Route: 048
     Dates: start: 2008
  10. CANDESARTAN CILEXETIL. [Concomitant]
     Active Substance: CANDESARTAN CILEXETIL
     Route: 048
     Dates: start: 2008
  11. RHEUMATREX [Suspect]
     Active Substance: METHOTREXATE SODIUM
     Indication: RHEUMATOID ARTHRITIS
     Route: 048
     Dates: start: 2007, end: 20131004

REACTIONS (2)
  - Cardiac failure chronic [Fatal]
  - Lymphoproliferative disorder [Fatal]

NARRATIVE: CASE EVENT DATE: 20140616
